FAERS Safety Report 12257520 (Version 2)
Quarter: 2016Q2

REPORT INFORMATION
  Report Type: Report from Study
  Country: ES (occurrence: ES)
  Receive Date: 20160412
  Receipt Date: 20160629
  Transmission Date: 20160815
  Serious: Yes (Disabling)
  Sender: FDA-Public Use
  Company Number: ES-TEVA-649589ISR

PATIENT
  Sex: Male

DRUGS (7)
  1. PAZITAL [Concomitant]
     Active Substance: ACETAMINOPHEN\TRAMADOL HYDROCHLORIDE
  2. LYRICA [Concomitant]
     Active Substance: PREGABALIN
  3. ENANTYUM [Concomitant]
     Active Substance: DEXKETOPROFEN TROMETAMOL
  4. VALIUM [Concomitant]
     Active Substance: DIAZEPAM
  5. COPAXONE [Suspect]
     Active Substance: GLATIRAMER ACETATE
     Dates: start: 20151023
  6. COPAXONE [Suspect]
     Active Substance: GLATIRAMER ACETATE
     Dates: start: 20090101
  7. SATIVEX [Concomitant]
     Active Substance: NABIXIMOLS

REACTIONS (1)
  - Varicose vein operation [Not Recovered/Not Resolved]

NARRATIVE: CASE EVENT DATE: 2011
